FAERS Safety Report 8999060 (Version 2)
Quarter: 2013Q1

REPORT INFORMATION
  Report Type: Spontaneous
  Country: US (occurrence: US)
  Receive Date: 20130103
  Receipt Date: 20130329
  Transmission Date: 20140127
  Serious: Yes (Death, Other)
  Sender: FDA-Public Use
  Company Number: PHEH2012US025686

PATIENT
  Age: 82 Year
  Sex: Female

DRUGS (6)
  1. RECLAST [Suspect]
     Indication: OSTEOPOROSIS
     Dosage: 5 MG, UNK
     Route: 042
     Dates: start: 20120315
  2. AMBIEN [Concomitant]
     Indication: INSOMNIA
     Dosage: UNK
     Route: 048
     Dates: start: 20120501
  3. LORAZEPAM [Concomitant]
     Indication: ANXIETY
     Dosage: UNK UKN, QID
     Route: 048
     Dates: start: 20120130
  4. CYMBALTA [Concomitant]
     Indication: DEPRESSION
     Dosage: UNK UKN, QHS
     Route: 048
     Dates: start: 20120501
  5. FIORICET [Concomitant]
     Indication: OSTEOPOROSIS
     Dosage: 2 UKN
     Route: 048
     Dates: start: 20110316
  6. ZORTAL [Concomitant]
     Indication: BACK PAIN
     Dosage: 1-2 UKN
     Route: 048
     Dates: start: 20100826

REACTIONS (3)
  - Cerebral haemorrhage [Fatal]
  - Fall [Unknown]
  - Loss of consciousness [Unknown]
